FAERS Safety Report 16719985 (Version 8)
Quarter: 2020Q4

REPORT INFORMATION
  Report Type: Spontaneous
  Country: US (occurrence: US)
  Receive Date: 20190820
  Receipt Date: 20201029
  Transmission Date: 20210113
  Serious: Yes (Other)
  Sender: FDA-Public Use
  Company Number: US-PFIZER INC-2019353006

PATIENT
  Age: 66 Year
  Sex: Female

DRUGS (1)
  1. XELJANZ XR [Suspect]
     Active Substance: TOFACITINIB CITRATE
     Dosage: 11 MG, UNK

REACTIONS (8)
  - Dementia [Unknown]
  - Disturbance in attention [Unknown]
  - Swelling [Unknown]
  - Confusional state [Unknown]
  - Nodule [Unknown]
  - Hypokinesia [Unknown]
  - Condition aggravated [Unknown]
  - Fatigue [Unknown]
